FAERS Safety Report 25062761 (Version 1)
Quarter: 2025Q1

REPORT INFORMATION
  Report Type: Spontaneous
  Country: PT (occurrence: PT)
  Receive Date: 20250311
  Receipt Date: 20250311
  Transmission Date: 20250409
  Serious: Yes (Death)
  Sender: MACLEODS
  Company Number: PT-MLMSERVICE-20250224-PI425577-00145-1

PATIENT

DRUGS (7)
  1. PREGABALIN [Suspect]
     Active Substance: PREGABALIN
     Indication: Anxiety
     Route: 065
  2. PREGABALIN [Suspect]
     Active Substance: PREGABALIN
     Indication: Pain
  3. FENTANYL [Suspect]
     Active Substance: FENTANYL
     Indication: Pain management
     Route: 062
  4. SENNA [Concomitant]
     Active Substance: SENNOSIDES
     Route: 065
  5. CLONAZEPAM [Concomitant]
     Active Substance: CLONAZEPAM
     Indication: Insomnia
     Dosage: AT BEDTIME
     Route: 065
  6. CLONAZEPAM [Concomitant]
     Active Substance: CLONAZEPAM
     Indication: Anxiety
     Route: 065
  7. MORPHINE [Concomitant]
     Active Substance: MORPHINE
     Indication: Breakthrough pain
     Route: 048

REACTIONS (6)
  - Death [Fatal]
  - Facial asymmetry [Recovering/Resolving]
  - Salivary hypersecretion [Unknown]
  - Condition aggravated [Recovering/Resolving]
  - Face oedema [Recovering/Resolving]
  - Tongue oedema [Recovering/Resolving]
